FAERS Safety Report 14854800 (Version 1)
Quarter: 2018Q2

REPORT INFORMATION
  Report Type: Report from Study
  Country: US (occurrence: US)
  Receive Date: 20180507
  Receipt Date: 20180507
  Transmission Date: 20180711
  Serious: Yes (Hospitalization, Other)
  Sender: FDA-Public Use
  Company Number: US-GILEAD-2018-0316229

PATIENT
  Age: 47 Year
  Sex: Male

DRUGS (14)
  1. TRAZODONE [Concomitant]
     Active Substance: TRAZODONE HYDROCHLORIDE
  2. SENEXON                            /00571901/ [Concomitant]
  3. LORAZEPAM. [Concomitant]
     Active Substance: LORAZEPAM
  4. AMBRISENTAN [Suspect]
     Active Substance: AMBRISENTAN
     Indication: PORTOPULMONARY HYPERTENSION
     Dosage: 10 MG, QD
     Route: 065
     Dates: start: 20170911
  5. MIDODRINE [Concomitant]
     Active Substance: MIDODRINE
  6. RIFAXIMIN. [Concomitant]
     Active Substance: RIFAXIMIN
  7. THIAMINE. [Concomitant]
     Active Substance: THIAMINE
  8. POLYETHYLENE GLYCOL [Concomitant]
     Active Substance: POLYETHYLENE GLYCOLS
  9. OXYCODONE [Concomitant]
     Active Substance: OXYCODONE
  10. FLOVENT [Concomitant]
     Active Substance: FLUTICASONE PROPIONATE
  11. MELATONIN [Concomitant]
     Active Substance: MELATONIN
  12. FOLIC ACID. [Concomitant]
     Active Substance: FOLIC ACID
  13. PANTOPRAZOLE [Concomitant]
     Active Substance: PANTOPRAZOLE
  14. POTASSIUM CHLORIDE. [Concomitant]
     Active Substance: POTASSIUM CHLORIDE

REACTIONS (4)
  - Fluid retention [Unknown]
  - Peripheral swelling [Unknown]
  - Generalised oedema [Recovering/Resolving]
  - Cardiac failure [Unknown]

NARRATIVE: CASE EVENT DATE: 201711
